FAERS Safety Report 6418349-X (Version None)
Quarter: 2009Q4

REPORT INFORMATION
  Report Type: 
  Country: None (occurrence: None)
  Receive Date: 20091028
  Receipt Date: 20091020
  Transmission Date: 20100525
  Serious: Yes (Other)
  Sender: FDA-Public Use
  Company Number: US-AMGEN-QUU364022

PATIENT
  Sex: Male

DRUGS (7)
  1. ENBREL [Suspect]
     Indication: PSORIASIS
     Route: 058
     Dates: start: 20050322, end: 20090901
  2. AMIODARONE [Concomitant]
  3. ASPIRIN [Concomitant]
  4. PRAVACHOL [Concomitant]
  5. PREVACID [Concomitant]
  6. THYROID TAB [Concomitant]
  7. ZINC [Concomitant]

REACTIONS (4)
  - DERMOID CYST [None]
  - DIZZINESS [None]
  - FOLLICLE CENTRE LYMPHOMA, FOLLICULAR GRADE I, II, III [None]
  - PSORIASIS [None]
